FAERS Safety Report 5336699-5 (Version None)
Quarter: 2007Q2

REPORT INFORMATION
  Report Type: 
  Country: None (occurrence: None)
  Receive Date: 20070524
  Receipt Date: 20070524
  Transmission Date: 20071010
  Serious: No
  Sender: FDA-Public Use
  Company Number: None

PATIENT
  Sex: Female
  Weight: 0.84 kg

DRUGS (1)
  1. FENTANYL [Suspect]
     Indication: PROCEDURAL PAIN
     Dosage: 1.68 MCG IV 1 TIME DOSE
     Route: 042
     Dates: start: 20070415

REACTIONS (5)
  - BRADYCARDIA [None]
  - CYANOSIS [None]
  - INFUSION RELATED REACTION [None]
  - MUSCLE RIGIDITY [None]
  - OXYGEN SATURATION DECREASED [None]
